FAERS Safety Report 20825131 (Version 1)
Quarter: 2022Q2

REPORT INFORMATION
  Report Type: Spontaneous
  Country: KR (occurrence: KR)
  Receive Date: 20220513
  Receipt Date: 20220513
  Transmission Date: 20220721
  Serious: Yes (Other)
  Sender: FDA-Public Use
  Company Number: KR-SUN PHARMACEUTICAL INDUSTRIES LTD-2022RR-336289

PATIENT
  Age: 14 Year
  Sex: Female
  Weight: 60 kg

DRUGS (8)
  1. NOREPINEPHRINE [Suspect]
     Active Substance: NOREPINEPHRINE
     Indication: Multisystem inflammatory syndrome in children
     Dosage: UNK
     Route: 065
  2. DOBUTAMINE [Suspect]
     Active Substance: DOBUTAMINE HYDROCHLORIDE
     Indication: Multisystem inflammatory syndrome in children
     Dosage: UNK
     Route: 065
  3. METHYLPREDNISOLONE [Suspect]
     Active Substance: METHYLPREDNISOLONE
     Indication: Multisystem inflammatory syndrome in children
     Dosage: 30 MILLIGRAM/KILOGRAM, DAILY
     Route: 065
  4. DOPAMINE [Suspect]
     Active Substance: DOPAMINE HYDROCHLORIDE
     Indication: Multisystem inflammatory syndrome in children
     Dosage: UNK
     Route: 065
  5. HUMAN IMMUNOGLOBULIN G [Suspect]
     Active Substance: HUMAN IMMUNOGLOBULIN G
     Indication: Multisystem inflammatory syndrome in children
     Dosage: 2 G/KG, ON THE FIRST DAY OF HOSPITALISATION
     Route: 042
  6. HUMAN IMMUNOGLOBULIN G [Suspect]
     Active Substance: HUMAN IMMUNOGLOBULIN G
     Dosage: 1 G/KG, UNK
     Route: 042
  7. PIPERACILLIN SODIUM\TAZOBACTAM SODIUM [Concomitant]
     Active Substance: PIPERACILLIN SODIUM\TAZOBACTAM SODIUM
     Indication: Septic shock
     Dosage: UNK
     Route: 065
  8. CEFTRIAXONE [Concomitant]
     Active Substance: CEFTRIAXONE
     Indication: Antibiotic therapy
     Dosage: UNK
     Route: 065

REACTIONS (3)
  - Disease progression [Unknown]
  - Condition aggravated [Unknown]
  - Drug ineffective [Unknown]
